FAERS Safety Report 10613891 (Version 2)
Quarter: 2014Q4

REPORT INFORMATION
  Report Type: Spontaneous
  Country: US (occurrence: US)
  Receive Date: 20141128
  Receipt Date: 20141224
  Transmission Date: 20150529
  Serious: No
  Sender: FDA-Public Use
  Company Number: US-ELI_LILLY_AND_COMPANY-US201411006035

PATIENT
  Age: 40 Year
  Sex: Male
  Weight: 88.44 kg

DRUGS (2)
  1. STRATTERA [Suspect]
     Active Substance: ATOMOXETINE HYDROCHLORIDE
     Dosage: 60 MG, QD
     Route: 048
     Dates: start: 20141102
  2. STRATTERA [Suspect]
     Active Substance: ATOMOXETINE HYDROCHLORIDE
     Indication: ATTENTION DEFICIT/HYPERACTIVITY DISORDER
     Dosage: 80 MG, QD
     Route: 048
     Dates: start: 20101011, end: 20141101

REACTIONS (1)
  - Pharyngitis [Recovered/Resolved]

NARRATIVE: CASE EVENT DATE: 20141111
